FAERS Safety Report 5505448-X (Version None)
Quarter: 2007Q4

REPORT INFORMATION
  Report Type: 
  Country: None (occurrence: None)
  Receive Date: 20071030
  Receipt Date: 20070705
  Transmission Date: 20080405
  Serious: No
  Sender: FDA-Public Use
  Company Number: 265232

PATIENT
  Age: 70 Year
  Sex: Male

DRUGS (3)
  1. LEVEMIR [Suspect]
     Indication: INSULIN-REQUIRING TYPE II DIABETES MELLITUS
     Dosage: 30 IU, QD, SUBCUTANEOUS ; SUBCUTANEOUS
     Route: 058
     Dates: start: 20050629
  2. NOVOLOG [Concomitant]
  3. ASPIRIN [Concomitant]

REACTIONS (3)
  - EXPIRED DRUG ADMINISTERED [None]
  - PRURITUS GENERALISED [None]
  - RASH GENERALISED [None]
